FAERS Safety Report 21451026 (Version 1)
Quarter: 2022Q4

REPORT INFORMATION
  Report Type: Report from Study
  Country: US (occurrence: US)
  Receive Date: 20221013
  Receipt Date: 20221013
  Transmission Date: 20230112
  Serious: Yes (Hospitalization, Other)
  Sender: FDA-Public Use
  Company Number: US-BRISTOL-MYERS SQUIBB COMPANY-2022-115390

PATIENT
  Age: 58 Year
  Sex: Male
  Weight: 60.01 kg

DRUGS (1)
  1. REVLIMID [Suspect]
     Active Substance: LENALIDOMIDE
     Indication: Plasma cell myeloma
     Dosage: 14 OF 21 DAYS
     Route: 048
     Dates: start: 20220815

REACTIONS (4)
  - Pyrexia [Unknown]
  - White blood cell count decreased [Unknown]
  - Off label use [Unknown]
  - Spinal cord compression [Unknown]
